FAERS Safety Report 5570713-7 (Version None)
Quarter: 2007Q4

REPORT INFORMATION
  Report Type: 
  Country: None (occurrence: None)
  Receive Date: 20071221
  Receipt Date: 20071214
  Transmission Date: 20080405
  Serious: Yes (Death)
  Sender: FDA-Public Use
  Company Number: JP-AVENTIS-200713088JP

PATIENT
  Age: 61 Year
  Sex: Female
  Weight: 79 kg

DRUGS (14)
  1. TAXOTERE [Suspect]
     Indication: BREAST CANCER
     Route: 041
     Dates: start: 20061219, end: 20061219
  2. HERCEPTIN [Suspect]
     Indication: BREAST CANCER
     Route: 041
     Dates: start: 20051018, end: 20051018
  3. HERCEPTIN [Suspect]
     Route: 041
     Dates: start: 20051025, end: 20070104
  4. HERCEPTIN [Suspect]
     Indication: METASTASES TO LYMPH NODES
     Route: 041
     Dates: start: 20051018, end: 20051018
  5. HERCEPTIN [Suspect]
     Route: 041
     Dates: start: 20051025, end: 20070104
  6. SELTOUCH [Concomitant]
     Indication: ARTHRALGIA
     Route: 003
     Dates: start: 20051109
  7. ANTEBATE [Concomitant]
     Indication: RASH
     Route: 003
     Dates: start: 20051115
  8. MS COLD [Concomitant]
     Indication: ARTHRALGIA
     Route: 003
     Dates: start: 20051115
  9. MS HOT PACK [Concomitant]
     Indication: ARTHRALGIA
     Route: 003
     Dates: start: 20051129
  10. KETOPROFEN [Concomitant]
     Indication: ARTHRALGIA
     Route: 003
     Dates: start: 20051213
  11. HUMALOG [Concomitant]
     Indication: DIABETES MELLITUS
     Dosage: DOSE: 300 UNITS
     Route: 058
     Dates: start: 20060404, end: 20070910
  12. HUMACART-N [Concomitant]
     Indication: DIABETES MELLITUS
     Dosage: DOSE: 300 UNITS
     Route: 058
     Dates: start: 20060404, end: 20070910
  13. HUMALIN [Concomitant]
     Indication: DIABETES MELLITUS
     Dosage: DOSE: 100 UNITS
     Route: 058
     Dates: start: 20070910, end: 20070926
  14. ASTAT [Concomitant]
     Indication: TINEA INFECTION
     Route: 003
     Dates: start: 20070912, end: 20070918

REACTIONS (7)
  - ALOPECIA [None]
  - CARDIAC FAILURE CONGESTIVE [None]
  - DIABETES MELLITUS [None]
  - EJECTION FRACTION DECREASED [None]
  - NEUTROPHIL COUNT DECREASED [None]
  - OEDEMA PERIPHERAL [None]
  - WHITE BLOOD CELL COUNT DECREASED [None]
